FAERS Safety Report 7474576-4 (Version None)
Quarter: 2011Q2

REPORT INFORMATION
  Report Type: 
  Country: None (occurrence: None)
  Receive Date: 20110503
  Receipt Date: 20110422
  Transmission Date: 20111010
  Serious: Yes (Death, Disabling)
  Sender: FDA-Public Use
  Company Number: TCI2011A02179

PATIENT
  Age: 75 Year
  Sex: Female

DRUGS (5)
  1. AMLODIPINE BESYLATE [Concomitant]
  2. HMG COA REDUCTASE INHIBITORS [Concomitant]
  3. ACTOS [Suspect]
     Indication: TYPE 2 DIABETES MELLITUS
     Dosage: 15 MG (15 MG,1 D) PER ORAL
     Route: 048
     Dates: start: 20090129, end: 20100228
  4. SULFONAMIDES, UREA DERIVATIVES [Concomitant]
  5. AVAPRO [Concomitant]

REACTIONS (5)
  - SPINOCEREBELLAR DISORDER [None]
  - DIZZINESS [None]
  - MUSCULAR WEAKNESS [None]
  - OEDEMA PERIPHERAL [None]
  - GAIT DISTURBANCE [None]
